FAERS Safety Report 12209334 (Version 1)
Quarter: 2016Q1

REPORT INFORMATION
  Report Type: Spontaneous
  Country: US (occurrence: US)
  Receive Date: 20160324
  Receipt Date: 20160324
  Transmission Date: 20160526
  Serious: Yes (Other)
  Sender: FDA-Public Use
  Company Number: ALCN2016US002062

PATIENT
  Age: 5 Year
  Sex: Female

DRUGS (4)
  1. PREDNISOLONE ACETATE. [Suspect]
     Active Substance: PREDNISOLONE ACETATE
     Indication: KERATITIS-ICHTHYOSIS-DEAFNESS SYNDROME
     Dosage: 1 GTT, QID
     Route: 047
  2. DRY EYE GEL [Concomitant]
     Indication: KERATITIS-ICHTHYOSIS-DEAFNESS SYNDROME
     Dosage: 1 DF, Q4H
     Route: 047
  3. PREDNISOLONE ACETATE. [Suspect]
     Active Substance: PREDNISOLONE ACETATE
     Indication: CORNEAL OPACITY
  4. CYCLOSPORIN A [Concomitant]
     Active Substance: CYCLOSPORINE
     Indication: KERATITIS-ICHTHYOSIS-DEAFNESS SYNDROME
     Dosage: 1 DF, BID
     Route: 061

REACTIONS (10)
  - Eye irritation [Recovering/Resolving]
  - Condition aggravated [Recovering/Resolving]
  - Corneal neovascularisation [Recovering/Resolving]
  - Visual acuity reduced [Recovering/Resolving]
  - Eyelid thickening [Recovering/Resolving]
  - Photophobia [Unknown]
  - Drug administered to patient of inappropriate age [Recovering/Resolving]
  - Corneal opacity [Recovering/Resolving]
  - Conjunctival hyperaemia [Recovering/Resolving]
  - Madarosis [Unknown]
